FAERS Safety Report 18464666 (Version 1)
Quarter: 2020Q4

REPORT INFORMATION
  Report Type: Spontaneous
  Country: CN (occurrence: CN)
  Receive Date: 20201104
  Receipt Date: 20201104
  Transmission Date: 20210114
  Serious: Yes (Death, Hospitalization, Other)
  Sender: FDA-Public Use
  Company Number: CN-JNJFOC-20201049475

PATIENT
  Age: 42 Year
  Sex: Female

DRUGS (1)
  1. BOSENTAN. [Suspect]
     Active Substance: BOSENTAN
     Indication: PULMONARY HYPERTENSION
     Route: 048

REACTIONS (13)
  - Hepatic vein dilatation [Unknown]
  - General physical health deterioration [Unknown]
  - Oxygen saturation decreased [Unknown]
  - Cardiac failure [Fatal]
  - Jaundice [Unknown]
  - Cyanosis [Unknown]
  - Pulmonary artery aneurysm [Unknown]
  - Hepatomegaly [Unknown]
  - Product use in unapproved indication [Unknown]
  - Orthopnoea [Unknown]
  - Arteriovenous fistula [Unknown]
  - Off label use [Unknown]
  - Treatment noncompliance [Unknown]
